FAERS Safety Report 12545499 (Version 1)
Quarter: 2016Q3

REPORT INFORMATION
  Report Type: Spontaneous
  Country: US (occurrence: US)
  Receive Date: 20160711
  Receipt Date: 20160711
  Transmission Date: 20161109
  Serious: No
  Sender: FDA-Public Use
  Company Number: GXBR2016US000963

PATIENT
  Age: 96 Year
  Sex: Female

DRUGS (1)
  1. NITRO-BID [Suspect]
     Active Substance: NITROGLYCERIN
     Indication: CARDIAC DISORDER
     Dosage: UNK DF, QID
     Route: 061

REACTIONS (1)
  - Extra dose administered [Recovered/Resolved]
